FAERS Safety Report 4345706-8 (Version None)
Quarter: 2004Q2

REPORT INFORMATION
  Report Type: 
  Country: None (occurrence: None)
  Receive Date: 20040421
  Receipt Date: 20040407
  Transmission Date: 20050107
  Serious: Yes (Hospitalization)
  Sender: FDA-Public Use
  Company Number: 2004-BP-02734BP

PATIENT
  Age: 64 Year
  Sex: Female

DRUGS (11)
  1. MICARDIS [Suspect]
     Indication: HYPERTENSION
     Dosage: 40 MG (40 MG), PO
     Route: 048
     Dates: start: 20040225
  2. ATACAND [Concomitant]
  3. SEREVENT [Concomitant]
  4. INSULIN [Concomitant]
  5. COUMADIN [Concomitant]
  6. TENORMIN [Concomitant]
  7. CLONIDINE HCL [Concomitant]
  8. DIGOXIN [Concomitant]
  9. IMDUR [Concomitant]
  10. LASIX [Concomitant]
  11. ACETYLSALICYLIC ACID SRT [Concomitant]

REACTIONS (1)
  - CELLULITIS [None]
